FAERS Safety Report 8397753 (Version 2)
Quarter: 2013Q4

REPORT INFORMATION
  Report Type: Spontaneous
  Country: US (occurrence: US)
  Receive Date: 20120130
  Receipt Date: 20131220
  Transmission Date: 20140711
  Serious: Yes (Hospitalization, Other)
  Sender: FDA-Public Use
  Company Number: 2012SP003575

PATIENT
  Age: 58 Year
  Sex: Male

DRUGS (14)
  1. VANCOMYCIN [Suspect]
     Indication: ARTHRITIS BACTERIAL
     Route: 042
  2. VANCOMYCIN [Suspect]
     Indication: ARTHRITIS
     Route: 042
  3. VANCOMYCIN [Suspect]
     Indication: STAPHYLOCOCCAL INFECTION
     Route: 042
  4. VANCOMYCIN [Suspect]
     Indication: ARTHRITIS BACTERIAL
  5. VANCOMYCIN [Suspect]
     Indication: ARTHRITIS
  6. VANCOMYCIN [Suspect]
     Indication: STAPHYLOCOCCAL INFECTION
  7. VANCOMYCIN [Suspect]
     Indication: ARTHRITIS BACTERIAL
  8. VANCOMYCIN [Suspect]
     Indication: ARTHRITIS
  9. VANCOMYCIN [Suspect]
     Indication: STAPHYLOCOCCAL INFECTION
  10. TOBRAMYCIN SULFATE [Suspect]
     Indication: ARTHRITIS BACTERIAL
  11. TOBRAMYCIN SULFATE [Suspect]
     Indication: STAPHYLOCOCCAL INFECTION
  12. HEPARIN [Concomitant]
     Indication: DEEP VEIN THROMBOSIS
     Route: 058
  13. DAPTOMYCIN [Concomitant]
     Indication: ARTHRITIS BACTERIAL
  14. DAPTOMYCIN [Concomitant]
     Indication: ARTHRITIS

REACTIONS (3)
  - Tubulointerstitial nephritis [Recovering/Resolving]
  - Rash maculo-papular [Recovered/Resolved]
  - Eosinophilia [Recovering/Resolving]
